FAERS Safety Report 25291454 (Version 1)
Quarter: 2025Q2

REPORT INFORMATION
  Report Type: Spontaneous
  Country: US (occurrence: US)
  Receive Date: 20250510
  Receipt Date: 20250510
  Transmission Date: 20250716
  Serious: No
  Sender: SANOFI AVENTIS
  Company Number: US-SA-2025SA123141

PATIENT
  Age: 50 Year

DRUGS (1)
  1. DUPIXENT [Suspect]
     Active Substance: DUPILUMAB
     Indication: Neurodermatitis
     Route: 065
     Dates: start: 20250328

REACTIONS (1)
  - Pruritus [Unknown]

NARRATIVE: CASE EVENT DATE: 20250101
